FAERS Safety Report 6324840-7 (Version None)
Quarter: 2009Q3

REPORT INFORMATION
  Report Type: 
  Country: None (occurrence: None)
  Receive Date: 20090824
  Receipt Date: 20090630
  Transmission Date: 20100115
  Serious: No
  Sender: FDA-Public Use
  Company Number: US-ABBOTT-09P-163-0581962-00

PATIENT
  Sex: Male

DRUGS (7)
  1. NIASPAN [Suspect]
     Indication: BLOOD TRIGLYCERIDES INCREASED
     Route: 048
  2. IBUPROFEN [Concomitant]
     Indication: BLOOD TRIGLYCERIDES INCREASED
  3. UNKNOWN [Concomitant]
     Indication: BLOOD CHOLESTEROL
  4. FISH OIL [Concomitant]
     Indication: DRUG USE FOR UNKNOWN INDICATION
  5. JOINT MEDICINE [Concomitant]
     Indication: ARTHROPATHY
  6. FLONASE [Concomitant]
     Indication: DRUG USE FOR UNKNOWN INDICATION
     Route: 045
  7. NEXIUM [Concomitant]
     Indication: DRUG USE FOR UNKNOWN INDICATION

REACTIONS (3)
  - NASAL CONGESTION [None]
  - NIGHT SWEATS [None]
  - OROPHARYNGEAL PAIN [None]
